FAERS Safety Report 9467924 (Version 2)
Quarter: 2013Q3

REPORT INFORMATION
  Report Type: Spontaneous
  Country: JP (occurrence: JP)
  Receive Date: 20130821
  Receipt Date: 20130920
  Transmission Date: 20140515
  Serious: Yes (Other)
  Sender: FDA-Public Use
  Company Number: JP-PFIZER INC-2013240597

PATIENT
  Age: 60 Year
  Sex: Male

DRUGS (5)
  1. GABAPEN [Suspect]
     Indication: EPILEPSY
     Dosage: 200 MG/DAY
     Route: 048
     Dates: start: 20130718, end: 20130722
  2. GABAPEN [Suspect]
     Indication: NEURALGIA
  3. VOLTAREN [Concomitant]
     Indication: SPINAL OSTEOARTHRITIS
     Dosage: 75 MG/DAY
     Route: 048
     Dates: start: 20130701, end: 20130720
  4. NAUZELIN OD [Concomitant]
     Indication: GASTROENTERITIS
     Dosage: 30 MG/DAY
     Route: 048
     Dates: start: 20130701
  5. NEXIUM [Concomitant]
     Indication: GASTROOESOPHAGEAL REFLUX DISEASE
     Dosage: 20 MG/DAY
     Route: 048
     Dates: start: 20130701, end: 20130720

REACTIONS (4)
  - Meniere^s disease [Not Recovered/Not Resolved]
  - Decreased appetite [Unknown]
  - Discomfort [Unknown]
  - Dizziness [Unknown]
